FAERS Safety Report 6769482-4 (Version None)
Quarter: 2010Q2

REPORT INFORMATION
  Report Type: 
  Country: None (occurrence: None)
  Receive Date: 20100615
  Receipt Date: 20100607
  Transmission Date: 20101027
  Serious: Yes (Other)
  Sender: FDA-Public Use
  Company Number: AT-BRISTOL-MYERS SQUIBB COMPANY-15144579

PATIENT
  Age: 70 Year
  Sex: Female
  Weight: 58 kg

DRUGS (1)
  1. ORENCIA [Suspect]
     Indication: POLYARTHRITIS
     Dosage: 3 INF
     Route: 042

REACTIONS (4)
  - HEADACHE [None]
  - HYPERTENSIVE CRISIS [None]
  - OEDEMA PERIPHERAL [None]
  - VERTIGO [None]
